FAERS Safety Report 5209212-0 (Version None)
Quarter: 2007Q1

REPORT INFORMATION
  Report Type: 
  Country: None (occurrence: None)
  Receive Date: 20070116
  Receipt Date: 20070108
  Transmission Date: 20070707
  Serious: Yes (Other)
  Sender: FDA-Public Use
  Company Number: AU-ROCHE-477479

PATIENT
  Age: 43 Year

DRUGS (4)
  1. CELLCEPT [Suspect]
     Route: 065
     Dates: start: 20050915, end: 20051115
  2. NEORAL [Suspect]
     Route: 048
     Dates: start: 20050915, end: 20051115
  3. PREDNISOLONE [Concomitant]
  4. PROGRAF [Concomitant]

REACTIONS (1)
  - NEPHROPATHY TOXIC [None]
